FAERS Safety Report 18950473 (Version 1)
Quarter: 2021Q1

REPORT INFORMATION
  Report Type: Spontaneous
  Country: US (occurrence: US)
  Receive Date: 20210228
  Receipt Date: 20210228
  Transmission Date: 20210420
  Serious: No
  Sender: FDA-Public Use
  Company Number: US-ROCHE-2718655

PATIENT
  Sex: Female

DRUGS (9)
  1. XOLAIR [Suspect]
     Active Substance: OMALIZUMAB
     Indication: ASTHMA
     Route: 058
     Dates: start: 20190716
  2. METOPROLOL SUCCINATE ER [Concomitant]
     Active Substance: METOPROLOL SUCCINATE
  3. COSENTYX [Concomitant]
     Active Substance: SECUKINUMAB
  4. ASPIRIN. [Concomitant]
     Active Substance: ASPIRIN
  5. PEPCID [Concomitant]
     Active Substance: FAMOTIDINE
  6. FLONASE ALLERGY RELIEF [Concomitant]
     Active Substance: FLUTICASONE PROPIONATE
  7. ZYRTEC [Concomitant]
     Active Substance: CETIRIZINE HYDROCHLORIDE
  8. METHOTREXATE. [Concomitant]
     Active Substance: METHOTREXATE
  9. XANAX XR [Concomitant]
     Active Substance: ALPRAZOLAM

REACTIONS (1)
  - Illness [Not Recovered/Not Resolved]
